FAERS Safety Report 5761163-9 (Version None)
Quarter: 2008Q2

REPORT INFORMATION
  Report Type: 
  Country: None (occurrence: None)
  Receive Date: 20080606
  Receipt Date: 20080605
  Transmission Date: 20081010
  Serious: Yes (Hospitalization)
  Sender: FDA-Public Use
  Company Number: B0518597A

PATIENT
  Age: 82 Year
  Sex: Female

DRUGS (11)
  1. ORBENINE [Suspect]
     Indication: ERYSIPELAS
     Dosage: 3G PER DAY
     Route: 048
     Dates: start: 20071201, end: 20071213
  2. AMOXICILLIN AND CLAVULANATE POTASSIUM [Suspect]
     Indication: ERYSIPELAS
     Route: 065
     Dates: start: 20071213, end: 20071215
  3. PREVISCAN [Concomitant]
     Dosage: 1TAB PER DAY
     Route: 065
  4. ATENOLOL [Concomitant]
     Route: 065
  5. COZAAR [Concomitant]
     Dosage: 1TAB PER DAY
     Route: 065
  6. MOPRAL [Concomitant]
     Dosage: 1TAB PER DAY
     Route: 065
  7. LASILIX [Concomitant]
     Dosage: 1G PER DAY
     Route: 042
  8. ALDOMET [Concomitant]
     Dosage: 1TAB PER DAY
     Route: 065
  9. NITRODERM [Concomitant]
     Dosage: 1PAT PER DAY
     Route: 065
  10. GENTAMICIN [Concomitant]
     Route: 065
     Dates: start: 20071213
  11. CORDARONE [Concomitant]
     Indication: THYROID DISORDER
     Route: 065

REACTIONS (5)
  - ANURIA [None]
  - DERMATITIS [None]
  - DRUG HYPERSENSITIVITY [None]
  - RENAL FAILURE ACUTE [None]
  - VENOUS STASIS [None]
